FAERS Safety Report 24194643 (Version 1)
Quarter: 2024Q3

REPORT INFORMATION
  Report Type: Spontaneous
  Country: US (occurrence: US)
  Receive Date: 20240809
  Receipt Date: 20240809
  Transmission Date: 20241016
  Serious: No
  Sender: CSL BEHRING
  Company Number: US-BEH-2024177030

PATIENT
  Sex: Female

DRUGS (2)
  1. HIZENTRA [Suspect]
     Active Substance: HUMAN IMMUNOGLOBULIN G
     Indication: Primary immunodeficiency syndrome
     Dosage: 50 ML
     Route: 065
  2. HIZENTRA [Suspect]
     Active Substance: HUMAN IMMUNOGLOBULIN G
     Dosage: 100 ML, QW
     Route: 065

REACTIONS (1)
  - Blood immunoglobulin G decreased [Unknown]

NARRATIVE: CASE EVENT DATE: 20240101
